FAERS Safety Report 11859812 (Version 1)
Quarter: 2015Q4

REPORT INFORMATION
  Report Type: Report from Study
  Country: GB (occurrence: GB)
  Receive Date: 20151222
  Receipt Date: 20151222
  Transmission Date: 20160305
  Serious: Yes (Hospitalization)
  Sender: FDA-Public Use
  Company Number: GB-BAXALTA-2015BLT003260

PATIENT
  Age: 5 Year
  Sex: Male
  Weight: 23.5 kg

DRUGS (3)
  1. PEGYLATED RECOMBINANT HUMAN FACTOR VIII [Suspect]
     Active Substance: RURIOCTOCOG ALFA PEGOL
     Dosage: UNK, 2X A WEEK
     Route: 042
     Dates: start: 20151013, end: 20151013
  2. PEGYLATED RECOMBINANT HUMAN FACTOR VIII [Suspect]
     Active Substance: RURIOCTOCOG ALFA PEGOL
     Indication: FACTOR VIII DEFICIENCY
     Dosage: UNK UNK, 2X A WEEK
     Route: 042
     Dates: start: 20151009, end: 20151009
  3. PEGYLATED RECOMBINANT HUMAN FACTOR VIII [Suspect]
     Active Substance: RURIOCTOCOG ALFA PEGOL
     Dosage: UNK, 2X A WEEK
     Route: 042
     Dates: start: 20151013, end: 20151013

REACTIONS (1)
  - Elbow deformity [Recovered/Resolved]

NARRATIVE: CASE EVENT DATE: 20151210
